FAERS Safety Report 11654378 (Version 1)
Quarter: 2015Q4

REPORT INFORMATION
  Report Type: Spontaneous
  Country: FR (occurrence: FR)
  Receive Date: 20151023
  Receipt Date: 20151023
  Transmission Date: 20160304
  Serious: Yes (Hospitalization)
  Sender: FDA-Public Use
  Company Number: FR-ROCHE-1649718

PATIENT
  Age: 86 Year
  Sex: Male

DRUGS (15)
  1. XARELTO [Concomitant]
     Active Substance: RIVAROXABAN
     Route: 065
  2. FOLIC ACID. [Concomitant]
     Active Substance: FOLIC ACID
  3. CIFLOX (FRANCE) [Concomitant]
     Active Substance: CIPROFLOXACIN
  4. DISULONE (FRANCE) [Suspect]
     Active Substance: DAPSONE\FERROUS OXALATE
     Route: 048
     Dates: start: 20150410
  5. BACTRIM [Concomitant]
     Active Substance: SULFAMETHOXAZOLE\TRIMETHOPRIM
     Route: 065
  6. VFEND [Concomitant]
     Active Substance: VORICONAZOLE
  7. DISULONE (FRANCE) [Suspect]
     Active Substance: DAPSONE\FERROUS OXALATE
     Route: 048
     Dates: start: 20150331, end: 20150409
  8. CRESTOR [Concomitant]
     Active Substance: ROSUVASTATIN CALCIUM
     Dosage: 5 MG/DAY 3 TIMES PER WEEK
     Route: 065
  9. LASILIX [Concomitant]
     Active Substance: FUROSEMIDE
  10. MABTHERA [Suspect]
     Active Substance: RITUXIMAB
     Indication: PRODUCT USED FOR UNKNOWN INDICATION
     Route: 042
     Dates: start: 20141020, end: 201504
  11. AXEPIM [Concomitant]
     Active Substance: CEFEPIME HYDROCHLORIDE
  12. ALBUMIN [Concomitant]
     Active Substance: ALBUMIN (HUMAN)
  13. DISULONE (FRANCE) [Suspect]
     Active Substance: DAPSONE\FERROUS OXALATE
     Indication: PRODUCT USED FOR UNKNOWN INDICATION
     Route: 048
     Dates: start: 20150227
  14. CEFOTAXIME [Concomitant]
     Active Substance: CEFOTAXIME SODIUM
  15. ROVAMYCINE [Concomitant]
     Active Substance: SPIRAMYCIN

REACTIONS (6)
  - Pulmonary mass [None]
  - Anaemia [None]
  - Lung disorder [Recovered/Resolved]
  - Pleural effusion [None]
  - Inflammation [None]
  - Septic shock [None]

NARRATIVE: CASE EVENT DATE: 20150708
